FAERS Safety Report 5591363-2 (Version None)
Quarter: 2008Q1

REPORT INFORMATION
  Report Type: 
  Country: None (occurrence: None)
  Receive Date: 20080115
  Receipt Date: 20080104
  Transmission Date: 20080703
  Serious: Yes (Hospitalization)
  Sender: FDA-Public Use
  Company Number: US-AMGEN-QUU259307

PATIENT
  Sex: Female

DRUGS (2)
  1. ENBREL [Suspect]
     Indication: RHEUMATOID ARTHRITIS
     Route: 058
     Dates: start: 19990101
  2. ARAVA [Concomitant]
     Dates: start: 20020101

REACTIONS (5)
  - BACK PAIN [None]
  - CORONARY ARTERIAL STENT INSERTION [None]
  - MOVEMENT DISORDER [None]
  - NEOPLASM SKIN [None]
  - SPINAL FUSION SURGERY [None]
